FAERS Safety Report 9539246 (Version 1)
Quarter: 2013Q3

REPORT INFORMATION
  Report Type: Spontaneous
  Country: US (occurrence: US)
  Receive Date: 20130920
  Receipt Date: 20130920
  Transmission Date: 20140515
  Serious: Yes (Hospitalization, Other)
  Sender: FDA-Public Use
  Company Number: US-BAYER-2013-113928

PATIENT
  Age: 37 Year
  Sex: Female
  Weight: 107.48 kg

DRUGS (22)
  1. YASMIN [Suspect]
  2. AMITRIPTYLINE [Concomitant]
     Dosage: 50 MG, HS
     Route: 048
  3. ULTRACET [Concomitant]
  4. TOPAMAX [Concomitant]
  5. ACYCLOVIR [ACICLOVIR] [Concomitant]
  6. PAROXETINE [Concomitant]
  7. BENADRYL [Concomitant]
  8. KEPPRA [Concomitant]
  9. ELAVIL [Concomitant]
  10. TRAZODONE [Concomitant]
  11. ZOLOFT [Concomitant]
  12. PROPRANOLOL [Concomitant]
  13. IBUPROFEN [Concomitant]
  14. HYDROCHLOROTHIAZIDE W/TRIAMTERENE [Concomitant]
  15. VALTREX [Concomitant]
     Dosage: 1 GM DAILY
     Route: 048
  16. MULTIVITAMIN [Concomitant]
  17. ECHINACEA [Concomitant]
  18. BENEFIBER [Concomitant]
  19. DIFLUCAN [Concomitant]
  20. SYNTHROID [Concomitant]
  21. TERCONAZOLE [Concomitant]
     Dosage: 0.4%, 45 GRSM
     Route: 067
  22. ALPRAZOLAM [Concomitant]
     Indication: ANXIETY
     Dosage: 0.05 MG, 1 EVERY 6 HOURS, AS NEEDED
     Route: 048

REACTIONS (3)
  - Pulmonary embolism [Recovered/Resolved]
  - Deep vein thrombosis [Recovered/Resolved]
  - Cholecystitis chronic [None]
